FAERS Safety Report 4350187-4 (Version None)
Quarter: 2004Q2

REPORT INFORMATION
  Report Type: 
  Country: None (occurrence: None)
  Receive Date: 20040426
  Receipt Date: 20040420
  Transmission Date: 20050107
  Serious: Yes (Hospitalization)
  Sender: FDA-Public Use
  Company Number: 2004-04-1116

PATIENT
  Age: 50 Year
  Sex: Female

DRUGS (2)
  1. CLARAMAX (DESLORATADINE) TABLETS   'LIKE CLARINEX' [Suspect]
     Indication: RASH
     Dosage: 1 BID ORAL
     Route: 048
     Dates: start: 20040410
  2. ALCOHOL [Suspect]
     Dosage: 6-7 DRINKS ORAL
     Route: 048
     Dates: start: 20040410

REACTIONS (4)
  - ALCOHOL USE [None]
  - CIRCULATORY COLLAPSE [None]
  - DIZZINESS [None]
  - TREATMENT NONCOMPLIANCE [None]
